FAERS Safety Report 20563478 (Version 3)
Quarter: 2022Q4

REPORT INFORMATION
  Report Type: Spontaneous
  Country: DE (occurrence: DE)
  Receive Date: 20220308
  Receipt Date: 20221007
  Transmission Date: 20230113
  Serious: Yes (Hospitalization, Other)
  Sender: FDA-Public Use
  Company Number: DE-002147023-PHHY2019DE049823

PATIENT
  Sex: Female
  Weight: 63 kg

DRUGS (11)
  1. LETROZOLE [Suspect]
     Active Substance: LETROZOLE
     Indication: Breast cancer metastatic
     Dosage: 2.5 MILLIGRAM, DAILY, QD
     Route: 048
     Dates: start: 20190105
  2. KISQALI [Suspect]
     Active Substance: RIBOCICLIB
     Indication: Breast cancer metastatic
     Dosage: 400 MILLIGRAM, DAILY, 400 MG, QD ADMINISTRATION SCHEME 21 DAYS INTAKE, 7 DAYS PAUSE
     Route: 048
     Dates: start: 20210424
  3. KISQALI [Suspect]
     Active Substance: RIBOCICLIB
     Dosage: 400 MILLIGRAM, DAILY, 400 MG, QD ADMINISTRATION SCHEME 21 DAYS INTAKE, 7 DAYS PAUSE
     Route: 048
     Dates: start: 20190912, end: 20200519
  4. KISQALI [Suspect]
     Active Substance: RIBOCICLIB
     Dosage: 400 MILLIGRAM, DAILY, 400 MG, QD ADMINISTRATION SCHEME 21 DAYS INTAKE, 7 DAYS PAUSE
     Route: 048
     Dates: start: 20200527, end: 20210331
  5. KISQALI [Suspect]
     Active Substance: RIBOCICLIB
     Dosage: 400 MILLIGRAM, DAILY, 400 MG, QD(21 DAYS INTAKE, 7 DAYS PAUSE)
     Route: 048
     Dates: start: 20190228, end: 20190522
  6. KISQALI [Suspect]
     Active Substance: RIBOCICLIB
     Dosage: 200 MILLIGRAM, DAILY, 200 MG, QD (21 DAYS INTAKE, 7 DAYS BREAK)
     Route: 048
     Dates: start: 20190523, end: 20190911
  7. KISQALI [Suspect]
     Active Substance: RIBOCICLIB
     Dosage: 600 MG, QD (21 DAYS INTAKE, 7 DAYS BREAK)
     Route: 048
     Dates: start: 20190105, end: 20190227
  8. ZOMETA [Suspect]
     Active Substance: ZOLEDRONIC ACID
     Indication: Product used for unknown indication
     Dosage: UNK
     Route: 065
  9. ZOMETA [Suspect]
     Active Substance: ZOLEDRONIC ACID
     Route: 065
  10. HYDROCHLOROTHIAZIDE\RAMIPRIL [Concomitant]
     Active Substance: HYDROCHLOROTHIAZIDE\RAMIPRIL
     Indication: Hypertension
     Dosage: 1 DOSAGE FORM, DAILY, 1 DF, RAMIPRIL 1X5/ HCT 25, QD (ONCE IN THE MORNING)
     Route: 048
     Dates: start: 201103, end: 201903
  11. AFINITOR [Concomitant]
     Active Substance: EVEROLIMUS
     Indication: Breast cancer
     Dosage: 5 MILLIGRAM, DAILY, 5 MG, QD
     Route: 048
     Dates: start: 20220812

REACTIONS (8)
  - Pain [Recovered/Resolved]
  - Joint swelling [Not Recovered/Not Resolved]
  - Anaemia [Recovered/Resolved]
  - Dizziness [Recovered/Resolved]
  - Trigger finger [Recovered/Resolved]
  - Alopecia [Recovered/Resolved]
  - Fatigue [Recovered/Resolved]
  - Humerus fracture [Recovered/Resolved]

NARRATIVE: CASE EVENT DATE: 20190118
